FAERS Safety Report 14760701 (Version 1)
Quarter: 2018Q2

REPORT INFORMATION
  Report Type: Report from Study
  Country: US (occurrence: US)
  Receive Date: 20180414
  Receipt Date: 20180414
  Transmission Date: 20180711
  Serious: Yes (Death)
  Sender: FDA-Public Use
  Company Number: US-JNJFOC-20180407410

PATIENT
  Age: 38 Year
  Sex: Female

DRUGS (2)
  1. TYLENOL 8HR [Suspect]
     Active Substance: ACETAMINOPHEN
     Route: 048
  2. TYLENOL 8HR [Suspect]
     Active Substance: ACETAMINOPHEN
     Indication: SUICIDE ATTEMPT
     Route: 048

REACTIONS (6)
  - Haemorrhage [Fatal]
  - Toxicity to various agents [Fatal]
  - PO2 increased [Fatal]
  - Agitation [Fatal]
  - PCO2 decreased [Fatal]
  - Aspartate aminotransferase increased [Fatal]
